FAERS Safety Report 5598958-0 (Version None)
Quarter: 2008Q1

REPORT INFORMATION
  Report Type: 
  Country: None (occurrence: None)
  Receive Date: 20080117
  Receipt Date: 20080108
  Transmission Date: 20080703
  Serious: Yes (Other)
  Sender: FDA-Public Use
  Company Number: 2008US000160

PATIENT
  Age: 44 Year
  Sex: Male

DRUGS (7)
  1. PROGRAF [Suspect]
     Indication: LIVER TRANSPLANT
  2. METHYLPREDNISOLONE [Suspect]
     Indication: LIVER TRANSPLANT
  3. MUROMONAB-CD3 (MUROMONAB-CD3) [Concomitant]
  4. PREDNISOLONE ACETATE [Concomitant]
  5. LAMIVUDINE [Concomitant]
  6. STAVUDINE [Concomitant]
  7. EFAVIRENZ [Concomitant]

REACTIONS (3)
  - HEPATIC NECROSIS [None]
  - LIVER TRANSPLANT REJECTION [None]
  - NECROTIC PRESERVATION INJURY OF GRAFT [None]
